FAERS Safety Report 5076983-6 (Version None)
Quarter: 2006Q3

REPORT INFORMATION
  Report Type: 
  Country: None (occurrence: None)
  Receive Date: 20060810
  Receipt Date: 20060803
  Transmission Date: 20061208
  Serious: Yes (Other)
  Sender: FDA-Public Use
  Company Number: 13454525

PATIENT
  Age: 46 Year
  Sex: Male

DRUGS (6)
  1. LAMIVUDINE [Suspect]
     Indication: HIV INFECTION
     Dosage: 150MG PER DAY
     Route: 048
     Dates: start: 20011217
  2. RETROVIR [Suspect]
     Indication: HIV INFECTION
     Dosage: 400MG PER DAY
     Route: 048
     Dates: start: 20041001
  3. EFAVIRENZ [Suspect]
     Indication: HIV INFECTION
     Route: 048
     Dates: start: 20011217
  4. ZERIT [Suspect]
     Indication: HIV INFECTION
     Dosage: 80MG PER DAY
     Dates: start: 20011217, end: 20040930
  5. REYATAZ [Suspect]
     Indication: HIV INFECTION
     Dosage: 400MG PER DAY
     Route: 048
     Dates: start: 20050401, end: 20050715
  6. LEXIVA [Suspect]
     Indication: HIV INFECTION
     Dosage: 1400MG PER DAY
     Route: 048
     Dates: start: 20050716

REACTIONS (5)
  - DIABETES MELLITUS [None]
  - FAT ATROPHY [None]
  - HEPATIC FUNCTION ABNORMAL [None]
  - HYPERCHOLESTEROLAEMIA [None]
  - HYPERTRIGLYCERIDAEMIA [None]
